FAERS Safety Report 5179122-6 (Version None)
Quarter: 2006Q4

REPORT INFORMATION
  Report Type: 
  Country: None (occurrence: None)
  Receive Date: 20061219
  Receipt Date: 20061214
  Transmission Date: 20070319
  Serious: Yes (Other)
  Sender: FDA-Public Use
  Company Number: PHFR2006GB03659

PATIENT
  Age: 56 Year
  Sex: Male

DRUGS (4)
  1. FAMVIR [Suspect]
     Indication: HERPES ZOSTER
     Dosage: 750 MG, QD
     Route: 048
     Dates: start: 20060905, end: 20060920
  2. BETAMETHASONE VALERATE [Concomitant]
     Route: 061
  3. FLUTICASONE PROPIONATE [Concomitant]
     Indication: ASTHMA
     Dosage: 250 UG, BID
     Dates: start: 20000101
  4. VENTOLIN [Concomitant]
     Indication: ASTHMA
     Dosage: 1 DF/DAY

REACTIONS (1)
  - ERYTHEMA MULTIFORME [None]
